FAERS Safety Report 7251381-5 (Version None)
Quarter: 2011Q1

REPORT INFORMATION
  Report Type: 
  Country: None (occurrence: None)
  Receive Date: 20110128
  Receipt Date: 20110124
  Transmission Date: 20110831
  Serious: Yes (Death, Hospitalization)
  Sender: FDA-Public Use
  Company Number: SK-PFIZER INC-2011017153

PATIENT
  Age: 65 Year

DRUGS (3)
  1. TEMSIROLIMUS [Suspect]
     Dosage: 175 MG, SINGLE
     Dates: start: 20100825, end: 20100825
  2. TEMSIROLIMUS [Suspect]
     Dosage: 175 MG, SINGLE
     Dates: start: 20100902, end: 20100902
  3. TEMSIROLIMUS [Suspect]
     Dosage: 75 MG, SINGLE
     Dates: start: 20100909, end: 20100909

REACTIONS (2)
  - RESPIRATORY FAILURE [None]
  - STOMATITIS [None]
